FAERS Safety Report 6491273-2 (Version None)
Quarter: 2009Q4

REPORT INFORMATION
  Report Type: 
  Country: None (occurrence: None)
  Receive Date: 20091211
  Receipt Date: 20091207
  Transmission Date: 20100525
  Serious: Yes (Other)
  Sender: FDA-Public Use
  Company Number: PHHY2009BE54433

PATIENT
  Sex: Male

DRUGS (2)
  1. NEORAL [Suspect]
     Indication: HEART TRANSPLANT
  2. IMURAN [Concomitant]

REACTIONS (2)
  - CARCINOID TUMOUR [None]
  - METASTASES TO SKIN [None]
